FAERS Safety Report 23649537 (Version 3)
Quarter: 2025Q1

REPORT INFORMATION
  Report Type: Spontaneous
  Country: DE (occurrence: DE)
  Receive Date: 20240319
  Receipt Date: 20250305
  Transmission Date: 20250409
  Serious: Yes (Death, Other)
  Sender: GILEAD
  Company Number: DE-PEI-202400005887

PATIENT
  Age: 72 Year
  Sex: Female

DRUGS (1)
  1. YESCARTA [Suspect]
     Active Substance: AXICABTAGENE CILOLEUCEL
     Indication: Diffuse large B-cell lymphoma
     Route: 065
     Dates: start: 20240226, end: 20240226

REACTIONS (3)
  - Cerebral haemorrhage [Fatal]
  - Immune effector cell-associated neurotoxicity syndrome [Recovered/Resolved]
  - Cytokine release syndrome [Recovered/Resolved]

NARRATIVE: CASE EVENT DATE: 20240309
